FAERS Safety Report 21089826 (Version 1)
Quarter: 2022Q3

REPORT INFORMATION
  Report Type: Spontaneous
  Country: US (occurrence: US)
  Receive Date: 20220715
  Receipt Date: 20220715
  Transmission Date: 20221027
  Serious: No
  Sender: FDA-Public Use
  Company Number: US-MYLANLABS-2022M1051869

PATIENT
  Age: 30 Year
  Sex: Female
  Weight: 91.17 kg

DRUGS (1)
  1. GLATIRAMER ACETATE [Suspect]
     Active Substance: GLATIRAMER ACETATE
     Indication: Multiple sclerosis
     Dosage: 40 MILLIGRAM, TID
     Route: 058
     Dates: start: 202203

REACTIONS (3)
  - Device malfunction [Unknown]
  - Device issue [Unknown]
  - Off label use [Unknown]

NARRATIVE: CASE EVENT DATE: 20220301
